FAERS Safety Report 9225294 (Version 1)
Quarter: 2013Q2

REPORT INFORMATION
  Report Type: Spontaneous
  Country: US (occurrence: None)
  Receive Date: 20130410
  Receipt Date: 20130410
  Transmission Date: 20140414
  Serious: Yes (Hospitalization)
  Sender: FDA-Public Use
  Company Number: None

PATIENT
  Age: 64 Year
  Sex: Female
  Weight: 104.6 kg

DRUGS (1)
  1. LIORESAL [Suspect]
     Indication: CEREBROVASCULAR ACCIDENT
     Dosage: VIA PUMP  IT
     Dates: start: 20130301, end: 20130305

REACTIONS (1)
  - Drug dispensing error [None]
